FAERS Safety Report 12119683 (Version 3)
Quarter: 2016Q3

REPORT INFORMATION
  Report Type: Spontaneous
  Country: DE (occurrence: DE)
  Receive Date: 20160226
  Receipt Date: 20160923
  Transmission Date: 20161109
  Serious: Yes (Hospitalization)
  Sender: FDA-Public Use
  Company Number: DE-AMGEN-DEUSP2015093426

PATIENT
  Age: 56 Year
  Sex: Female
  Weight: 52 kg

DRUGS (5)
  1. CALCIUM EFFERVESCENS               /01767901/ [Concomitant]
     Route: 048
  2. MONO EMBOLEX [Concomitant]
     Active Substance: CERTOPARIN SODIUM
     Dosage: 3000 IU, QD
     Route: 065
  3. PROLIA [Suspect]
     Active Substance: DENOSUMAB
     Indication: OSTEOPOROSIS POSTMENOPAUSAL
     Dosage: 60 MG, UNK
     Route: 065
     Dates: start: 20150414
  4. NOVAMINSULFON [Concomitant]
     Active Substance: METAMIZOLE
     Dosage: 500 MG, UNK
     Route: 065
  5. FLUORETTE [Concomitant]
     Dosage: 1000 IU, UNK
     Route: 065

REACTIONS (7)
  - Local swelling [Recovered/Resolved]
  - Exostosis [Recovered/Resolved with Sequelae]
  - Lymphoedema [Recovered/Resolved]
  - Feeling hot [Recovered/Resolved]
  - Erythema [Recovered/Resolved]
  - Peripheral swelling [Recovered/Resolved]
  - Sciatica [Not Recovered/Not Resolved]

NARRATIVE: CASE EVENT DATE: 201506
